FAERS Safety Report 24156399 (Version 1)
Quarter: 2024Q3

REPORT INFORMATION
  Report Type: Spontaneous
  Country: JP (occurrence: JP)
  Receive Date: 20240731
  Receipt Date: 20240731
  Transmission Date: 20241017
  Serious: Yes (Death, Hospitalization)
  Sender: PFIZER
  Company Number: JP-PFIZER INC-202400225249

PATIENT
  Age: 25 Year

DRUGS (2)
  1. VFEND [Suspect]
     Active Substance: VORICONAZOLE
     Indication: Infection
     Dosage: 600 MG, DAILY
     Route: 048
  2. FLUCONAZOLE [Suspect]
     Active Substance: FLUCONAZOLE
     Indication: Candida infection
     Dosage: UNK
     Route: 048

REACTIONS (6)
  - Overdose [Fatal]
  - Immunodeficiency [Fatal]
  - Cutaneous mucormycosis [Fatal]
  - Pulmonary mucormycosis [Fatal]
  - Weight decreased [Unknown]
  - Decreased appetite [Unknown]
